FAERS Safety Report 8303215 (Version 7)
Quarter: 2013Q3

REPORT INFORMATION
  Report Type: Spontaneous
  Country: US (occurrence: US)
  Receive Date: 20111220
  Receipt Date: 20130824
  Transmission Date: 20140515
  Serious: Yes (Hospitalization, Other)
  Sender: FDA-Public Use
  Company Number: US-ROCHE-792703

PATIENT
  Age: 13 Year
  Sex: Male
  Weight: 89.44 kg

DRUGS (1)
  1. ACCUTANE [Suspect]
     Indication: ACNE CYSTIC
     Route: 065
     Dates: start: 20000601, end: 20001231

REACTIONS (9)
  - Colitis ulcerative [Unknown]
  - Depression [Unknown]
  - Suicidal ideation [Unknown]
  - Inflammatory bowel disease [Unknown]
  - Post-traumatic stress disorder [Unknown]
  - Hepatic enzyme increased [Unknown]
  - Lip dry [Recovering/Resolving]
  - Blood triglycerides increased [Unknown]
  - Epistaxis [Unknown]
